FAERS Safety Report 7161225-8 (Version None)
Quarter: 2010Q4

REPORT INFORMATION
  Report Type: 
  Country: None (occurrence: None)
  Receive Date: 20101201
  Receipt Date: 20101125
  Transmission Date: 20110411
  Serious: Yes (Hospitalization)
  Sender: FDA-Public Use
  Company Number: CN-JNJFOC-20101102416

PATIENT
  Age: 55 Year
  Sex: Male
  Weight: 67 kg

DRUGS (1)
  1. DECITABINE (DECITABINE) LYOPHILIZED POWDER [Suspect]
     Indication: MYELODYSPLASTIC SYNDROME
     Dosage: 35 MG, IN 1 DAY; INTRAVENOUS
     Route: 042
     Dates: start: 20100922, end: 20101104

REACTIONS (12)
  - ABDOMINAL ADHESIONS [None]
  - ABDOMINAL PAIN [None]
  - ASTHMA [None]
  - COUGH [None]
  - DIARRHOEA [None]
  - ENTERITIS [None]
  - ILEUS [None]
  - INTERSTITIAL LUNG DISEASE [None]
  - LUNG INFECTION [None]
  - OEDEMA [None]
  - PYREXIA [None]
  - RALES [None]
